FAERS Safety Report 15337898 (Version 2)
Quarter: 2018Q4

REPORT INFORMATION
  Report Type: Spontaneous
  Country: RU (occurrence: RU)
  Receive Date: 20180831
  Receipt Date: 20181221
  Transmission Date: 20190204
  Serious: Yes (Hospitalization, Other)
  Sender: FDA-Public Use
  Company Number: RU-REGENERON PHARMACEUTICALS, INC.-2018-35218

PATIENT

DRUGS (2)
  1. EYLEA [Suspect]
     Active Substance: AFLIBERCEPT
     Indication: PRODUCT USED FOR UNKNOWN INDICATION
     Dosage: 2 INTRAVITREAL INJECTIONS FOR THE LATEST 6 MONTHS WHICH THE PATIENT HAD RECEIVED BEFORE REPORTED END
     Route: 031
     Dates: start: 201808, end: 20180809
  2. LEVOFLOXACINE                      /01278901/ [Concomitant]
     Active Substance: LEVOFLOXACIN
     Indication: PRODUCT USED FOR UNKNOWN INDICATION

REACTIONS (4)
  - Blindness unilateral [Unknown]
  - Endophthalmitis [Unknown]
  - Visual acuity reduced [Unknown]
  - Ocular discomfort [Unknown]
